FAERS Safety Report 12285294 (Version 6)
Quarter: 2016Q4

REPORT INFORMATION
  Report Type: Spontaneous
  Country: BR (occurrence: BR)
  Receive Date: 20160420
  Receipt Date: 20161212
  Transmission Date: 20170207
  Serious: Yes (Other)
  Sender: FDA-Public Use
  Company Number: PHHY2016BR042360

PATIENT
  Sex: Female
  Weight: 79 kg

DRUGS (4)
  1. EXELON PATCH [Suspect]
     Active Substance: RIVASTIGMINE
     Dosage: 13.3 MG (PATCH 27 MG/15CM2 30 PATCHES), QD
     Route: 062
  2. EXELON PATCH [Suspect]
     Active Substance: RIVASTIGMINE
     Indication: CONFUSIONAL STATE
     Dosage: 4.6 MG (PATCH 9 MG/5CM2) QD
     Route: 062
  3. EXELON PATCH [Suspect]
     Active Substance: RIVASTIGMINE
     Dosage: 13.3 MG (PATCH 27 MG/15CM2 30 PATCHES), QD
     Route: 062
  4. EXELON PATCH [Suspect]
     Active Substance: RIVASTIGMINE
     Indication: MEMORY IMPAIRMENT
     Dosage: 9.5 MG (PATCH 18 MG/10CM2), QD
     Route: 062

REACTIONS (6)
  - Product use issue [Unknown]
  - Cerebral ischaemia [Unknown]
  - Dermatitis allergic [Recovered/Resolved]
  - Cerebrovascular accident [Unknown]
  - Pruritus [Recovered/Resolved]
  - Product adhesion issue [Unknown]
